FAERS Safety Report 7558210-0 (Version None)
Quarter: 2011Q2

REPORT INFORMATION
  Report Type: 
  Country: None (occurrence: None)
  Receive Date: 20110620
  Receipt Date: 20110615
  Transmission Date: 20111010
  Serious: Yes (Death)
  Sender: FDA-Public Use
  Company Number: US-ELI_LILLY_AND_COMPANY-US201106004594

PATIENT
  Age: 18 Year
  Sex: Male
  Weight: 226.76 kg

DRUGS (1)
  1. BYETTA [Suspect]

REACTIONS (4)
  - OFF LABEL USE [None]
  - DECREASED APPETITE [None]
  - MYOCARDIAL INFARCTION [None]
  - WEIGHT DECREASED [None]
